FAERS Safety Report 4477371-3 (Version None)
Quarter: 2005Q1

REPORT INFORMATION
  Report Type: 
  Country: None (occurrence: None)
  Receive Date: 20041013
  Receipt Date: 20040927
  Transmission Date: 20050727
  Serious: Yes (Hospitalization)
  Sender: FDA-Public Use
  Company Number: DSA_25078_2004

PATIENT
  Age: 43 Year
  Sex: Male

DRUGS (13)
  1. ENALAPRIL MALEATE [Suspect]
     Dosage: 20 MG QD PO
     Route: 048
  2. AMOXICILLIN [Suspect]
     Dosage: 2 G Q DAY PO
     Route: 048
     Dates: start: 20030701, end: 20030701
  3. BIAXIN [Suspect]
     Dosage: 500 MG BID PO
     Route: 048
     Dates: start: 20030701, end: 20030701
  4. ZYLORIC ^FAES^ [Suspect]
     Dosage: 100 MG QD PO
     Route: 048
     Dates: end: 20040607
  5. SANDIMMUNE [Suspect]
     Dosage: 150 MG Q DAY PO
     Route: 048
  6. FLUOXETINE [Suspect]
     Dosage: 20 MG QD PO
     Route: 048
  7. TENORMIN [Suspect]
     Dosage: 50 MG QD PO
     Route: 048
  8. NORVASC [Concomitant]
  9. MADOPAR [Concomitant]
  10. CALCIMAGON [Concomitant]
  11. RIVOTRIL [Concomitant]
  12. SIFROL [Concomitant]
  13. PREDNISONE [Concomitant]

REACTIONS (2)
  - CHOLELITHIASIS [None]
  - HEPATITIS CHOLESTATIC [None]
